FAERS Safety Report 4375679-3 (Version None)
Quarter: 2004Q2

REPORT INFORMATION
  Report Type: 
  Country: None (occurrence: None)
  Receive Date: 20040607
  Receipt Date: 20040524
  Transmission Date: 20050107
  Serious: Yes (Other)
  Sender: FDA-Public Use
  Company Number: US-JNJFOC-20040200114

PATIENT
  Age: 56 Year
  Sex: Female
  Weight: 86.1834 kg

DRUGS (11)
  1. REMICADE [Suspect]
     Indication: RHEUMATOID ARTHRITIS
     Dosage: 300 MG, INTRAVENOUS
     Route: 042
     Dates: start: 20031128
  2. SYNTHROID [Concomitant]
  3. HYDRODIURIL [Concomitant]
  4. XANAX [Concomitant]
  5. PRILOSEC [Concomitant]
  6. ANEXIA (VICODIN) [Concomitant]
  7. GLUCOPHAGE [Concomitant]
  8. CELEBREX [Concomitant]
  9. THEO-DUR [Concomitant]
  10. PREDNISONE [Concomitant]
  11. MICRO K (POTASSIUM CHLORIDE) [Concomitant]

REACTIONS (15)
  - ATAXIA [None]
  - BLOOD CHOLESTEROL INCREASED [None]
  - BLOOD GLUCOSE INCREASED [None]
  - BRAIN STEM ISCHAEMIA [None]
  - CAROTID ARTERY STENOSIS [None]
  - CEREBRAL ATROPHY [None]
  - CEREBRAL INFARCTION [None]
  - DIZZINESS [None]
  - DYSKINESIA [None]
  - ELECTROCARDIOGRAM ST-T CHANGE [None]
  - ELECTROENCEPHALOGRAM ABNORMAL [None]
  - GAIT DISTURBANCE [None]
  - GRAND MAL CONVULSION [None]
  - MIDDLE INSOMNIA [None]
  - TREMOR [None]
